FAERS Safety Report 10720805 (Version 1)
Quarter: 2015Q1

REPORT INFORMATION
  Report Type: Spontaneous
  Country: US (occurrence: US)
  Receive Date: 20150119
  Receipt Date: 20150119
  Transmission Date: 20150721
  Serious: No
  Sender: FDA-Public Use
  Company Number: US-PFIZER INC-2015016772

PATIENT
  Sex: Female
  Weight: 83.9 kg

DRUGS (3)
  1. LYRICA [Suspect]
     Active Substance: PREGABALIN
     Indication: ARTHRITIS
     Dosage: 50 MG, UNK
     Dates: start: 2010
  2. LYRICA [Suspect]
     Active Substance: PREGABALIN
     Indication: FIBROMYALGIA
  3. LYRICA [Suspect]
     Active Substance: PREGABALIN
     Indication: ARTHRALGIA
     Dosage: 150 MG, 2X/DAY

REACTIONS (5)
  - Weight increased [Unknown]
  - Muscle spasms [Unknown]
  - Arthralgia [Unknown]
  - Pain [Unknown]
  - Drug withdrawal syndrome [Unknown]
